FAERS Safety Report 17504244 (Version 1)
Quarter: 2020Q1

REPORT INFORMATION
  Report Type: Spontaneous
  Country: CN (occurrence: CN)
  Receive Date: 20200305
  Receipt Date: 20200305
  Transmission Date: 20200409
  Serious: Yes (Hospitalization)
  Sender: FDA-Public Use
  Company Number: CN-BAXTER-2020BAX004753

PATIENT
  Age: 32 Year
  Sex: Male
  Weight: 64 kg

DRUGS (14)
  1. LIXING [PEGYLATED LIPOSOMAL DOXORUBICIN HYDROCHLORIDE] [Suspect]
     Active Substance: DOXORUBICIN HYDROCHLORIDE
     Dosage: DOSE RE-INTRODUCED, LIPOSOME INJECTION, LIXING LIPOSOME INJECTION + GS
     Route: 041
     Dates: start: 202002
  2. 0.9% SODIUM CHLORIDE INJECTION [Suspect]
     Active Substance: SODIUM CHLORIDE
     Dosage: DOSE RE-INTRODUCED, VINDESINE SULFATE POWDER FOR INJECTION + NS
     Route: 041
     Dates: start: 202002
  3. 5% GLUCOSE  INJECTION [Suspect]
     Active Substance: DEXTROSE
     Indication: MEDICATION DILUTION
     Dosage: LIXING LIPOSOME INJECTION 40 MG + GS, DAY 1
     Route: 041
     Dates: start: 20200205, end: 20200205
  4. 5% GLUCOSE  INJECTION [Suspect]
     Active Substance: DEXTROSE
     Dosage: DOSE RE-INTRODUCED, LIXING LIPOSOME INJECTION + GS
     Route: 041
     Dates: start: 202002
  5. VINDESINE SULFATE [Suspect]
     Active Substance: VINDESINE SULFATE
     Indication: BONE CANCER
     Dosage: VINDESINE SULFATE POWDER FOR INJECTION + NS 500 ML, DAY 1
     Route: 041
     Dates: start: 20200205, end: 20200205
  6. 0.9% SODIUM CHLORIDE INJECTION [Suspect]
     Active Substance: SODIUM CHLORIDE
     Dosage: DOSE RE-INTRODUCED, ENDOXAN POWDER FOR INJECTION + NS
     Route: 041
     Dates: start: 202002
  7. VINDESINE SULFATE [Suspect]
     Active Substance: VINDESINE SULFATE
     Dosage: DOSE RE-INTRODUCED, VINDESINE SULFATE POWDER FOR INJECTION + NS
     Route: 041
     Dates: start: 202002
  8. 0.9% SODIUM CHLORIDE INJECTION [Suspect]
     Active Substance: SODIUM CHLORIDE
     Indication: MEDICATION DILUTION
     Dosage: ENDOXAN POWDER FOR INJECTION 1 G + NS, DAY 1 AND DAY 2
     Route: 041
     Dates: start: 20200205, end: 20200206
  9. LIXING [PEGYLATED LIPOSOMAL DOXORUBICIN HYDROCHLORIDE] [Suspect]
     Active Substance: DOXORUBICIN HYDROCHLORIDE
     Indication: BONE CANCER
     Dosage: LIPOSOME INJECTION, LIXING LIPOSOME INJECTION + GS 500 ML, DAY 1
     Route: 041
     Dates: start: 20200205, end: 20200205
  10. LIXING [PEGYLATED LIPOSOMAL DOXORUBICIN HYDROCHLORIDE] [Suspect]
     Active Substance: DOXORUBICIN HYDROCHLORIDE
     Dosage: LIPOSOME INJECTION, LIXING LIPOSOME INJECTION + GS 500 ML, DAY 2
     Route: 041
     Dates: start: 20200206, end: 20200206
  11. ENDOXAN [Suspect]
     Active Substance: CYCLOPHOSPHAMIDE
     Indication: BONE CANCER
     Dosage: ENDOXAN POWDER FOR INJECTION + NS 500 ML, DAY 1 AND DAY 2
     Route: 041
     Dates: start: 20200205, end: 20200206
  12. ENDOXAN [Suspect]
     Active Substance: CYCLOPHOSPHAMIDE
     Dosage: DOSE RE-INTRODUCED, ENDOXAN POWDER FOR INJECTION + NS
     Route: 041
     Dates: start: 202002
  13. 0.9% SODIUM CHLORIDE INJECTION [Suspect]
     Active Substance: SODIUM CHLORIDE
     Dosage: VINDESINE SULFATE POWDER FOR INJECTION 4 MG + NS, DAY 1
     Route: 041
     Dates: start: 20200205, end: 20200205
  14. 5% GLUCOSE  INJECTION [Suspect]
     Active Substance: DEXTROSE
     Dosage: LIXING LIPOSOME INJECTION 50 MG + GS, DAY 2
     Route: 041
     Dates: start: 20200206, end: 20200206

REACTIONS (1)
  - Bone marrow failure [Recovering/Resolving]

NARRATIVE: CASE EVENT DATE: 20200217
